FAERS Safety Report 9388423 (Version 1)
Quarter: 2013Q3

REPORT INFORMATION
  Report Type: Spontaneous
  Country: US (occurrence: US)
  Receive Date: 20130708
  Receipt Date: 20130708
  Transmission Date: 20140515
  Serious: No
  Sender: FDA-Public Use
  Company Number: US-ASTRAZENECA-2013SE42800

PATIENT
  Age: 58 Year
  Sex: Female
  Weight: 83.9 kg

DRUGS (4)
  1. CRESTOR [Suspect]
     Indication: BLOOD CHOLESTEROL INCREASED
     Route: 048
     Dates: start: 20130608
  2. CRESTOR [Suspect]
     Indication: BLOOD CHOLESTEROL ABNORMAL
     Route: 048
     Dates: start: 20130608
  3. AMOXICILLIN [Suspect]
     Route: 065
  4. LIPITOR [Concomitant]

REACTIONS (4)
  - Defaecation urgency [Unknown]
  - Diarrhoea [Recovering/Resolving]
  - Myalgia [Unknown]
  - Nausea [Unknown]
